FAERS Safety Report 13913530 (Version 1)
Quarter: 2017Q3

REPORT INFORMATION
  Report Type: Spontaneous
  Country: US (occurrence: US)
  Receive Date: 20170828
  Receipt Date: 20170828
  Transmission Date: 20171127
  Serious: No
  Sender: FDA-Public Use
  Company Number: US-ROCHE-1136369

PATIENT
  Age: 11 Year
  Sex: Male
  Weight: 29.1 kg

DRUGS (5)
  1. CLONIDINE. [Concomitant]
     Active Substance: CLONIDINE
  2. ADDERALL [Concomitant]
     Active Substance: AMPHETAMINE ASPARTATE\AMPHETAMINE SULFATE\DEXTROAMPHETAMINE SACCHARATE\DEXTROAMPHETAMINE SULFATE
  3. NUTROPIN AQ [Suspect]
     Active Substance: SOMATROPIN
     Indication: GROWTH HORMONE DEFICIENCY
     Route: 065
     Dates: start: 19970904
  4. RISPERDAL [Concomitant]
     Active Substance: RISPERIDONE
  5. LUVOX [Concomitant]
     Active Substance: FLUVOXAMINE MALEATE

REACTIONS (7)
  - Vomiting [Unknown]
  - Migraine [Unknown]
  - Constipation [Unknown]
  - Abdominal pain lower [Unknown]
  - Pain in extremity [Unknown]
  - Abdominal pain [Unknown]
  - Headache [Unknown]

NARRATIVE: CASE EVENT DATE: 200010
